FAERS Safety Report 6132512-7 (Version None)
Quarter: 2009Q1

REPORT INFORMATION
  Report Type: 
  Country: None (occurrence: None)
  Receive Date: 20090325
  Receipt Date: 20090317
  Transmission Date: 20090719
  Serious: Yes (Other)
  Sender: FDA-Public Use
  Company Number: US-GILEAD-2009-0020908

PATIENT
  Age: 64 Year
  Sex: Male

DRUGS (4)
  1. HEPSERA [Suspect]
     Indication: HEPATITIS B
     Route: 048
     Dates: start: 20030703
  2. LAMIVUDINE [Suspect]
     Indication: HEPATITIS B
     Dates: start: 20030703
  3. COUMADIN [Concomitant]
  4. COZAAR [Concomitant]

REACTIONS (1)
  - LARYNGEAL CANCER [None]
